FAERS Safety Report 13660612 (Version 4)
Quarter: 2017Q3

REPORT INFORMATION
  Report Type: Spontaneous
  Country: US (occurrence: US)
  Receive Date: 20170616
  Receipt Date: 20170915
  Transmission Date: 20171127
  Serious: Yes (Hospitalization, Other)
  Sender: FDA-Public Use
  Company Number: US-PFIZER INC-2017260265

PATIENT
  Age: 68 Year
  Sex: Female

DRUGS (2)
  1. PROTONIX [Suspect]
     Active Substance: PANTOPRAZOLE SODIUM
     Indication: GASTROOESOPHAGEAL REFLUX DISEASE
     Dosage: UNK
  2. PROTONIX [Suspect]
     Active Substance: PANTOPRAZOLE SODIUM
     Dosage: UNK
     Dates: start: 2012

REACTIONS (8)
  - Vomiting [Unknown]
  - Incorrect drug administration duration [Unknown]
  - Barrett^s oesophagus [Unknown]
  - Type 2 diabetes mellitus [Unknown]
  - Nephrocalcinosis [Unknown]
  - Renal failure [Unknown]
  - Migraine [Unknown]
  - Weight increased [Not Recovered/Not Resolved]

NARRATIVE: CASE EVENT DATE: 201511
